FAERS Safety Report 14676438 (Version 1)
Quarter: 2018Q1

REPORT INFORMATION
  Report Type: Report from Study
  Country: TR (occurrence: TR)
  Receive Date: 20180323
  Receipt Date: 20180323
  Transmission Date: 20180509
  Serious: Yes (Death, Other)
  Sender: FDA-Public Use
  Company Number: PHHY2018TR038890

PATIENT

DRUGS (2)
  1. LEE011 [Suspect]
     Active Substance: RIBOCICLIB
     Indication: NEOPLASM
  2. LEE011 [Suspect]
     Active Substance: RIBOCICLIB
     Indication: LYMPHOMA
     Route: 065

REACTIONS (3)
  - Neutropenia [Unknown]
  - Death [Fatal]
  - Thrombocytopenia [Unknown]
